FAERS Safety Report 16868380 (Version 1)
Quarter: 2019Q3

REPORT INFORMATION
  Report Type: Spontaneous
  Country: DE (occurrence: DE)
  Receive Date: 20190930
  Receipt Date: 20190930
  Transmission Date: 20191005
  Serious: Yes (Congenital Anomaly, Other)
  Sender: FDA-Public Use
  Company Number: DE-009507513-1909DEU008700

PATIENT
  Age: 1 Day
  Sex: Male
  Weight: 3.29 kg

DRUGS (8)
  1. XUSAL [Suspect]
     Active Substance: LEVOCETIRIZINE DIHYDROCHLORIDE
     Indication: HYPERSENSITIVITY
     Dosage: 0. - 8. GESTATIONAL WEEK
     Route: 064
  2. ALBUTEROL. [Concomitant]
     Active Substance: ALBUTEROL
     Indication: ASTHMA
     Dosage: 0. - 38.4. GESTATIONAL WEEK
     Route: 064
     Dates: start: 20170902, end: 20180530
  3. FOLSAN [Concomitant]
     Active Substance: FOLIC ACID
     Indication: PROPHYLAXIS OF NEURAL TUBE DEFECT
     Dosage: 4.1. - 38.4. GESTATIONAL WEEK
     Route: 064
     Dates: start: 20171001, end: 20180530
  4. PREGABALIN. [Suspect]
     Active Substance: PREGABALIN
     Indication: POST-TRAUMATIC STRESS DISORDER
     Dosage: 300 [MG/D (TWICE125)], 0. - 38.4. GESTATIONAL WEEK
     Route: 064
     Dates: start: 20170902, end: 20180530
  5. DULOXETINE HYDROCHLORIDE. [Suspect]
     Active Substance: DULOXETINE HYDROCHLORIDE
     Indication: DEPRESSION
     Dosage: 30 [MG/D], 2.5. - 38.4. GESTATIONAL WEEK
     Route: 064
     Dates: start: 20170921, end: 20180530
  6. ESCITALOPRAM [Concomitant]
     Active Substance: ESCITALOPRAM OXALATE
     Indication: DEPRESSION
     Dosage: 20 [MG/D ], 0. - 2.5. GESTATIONAL WEEK
     Route: 064
     Dates: start: 20170902, end: 20170921
  7. MIRTAZAPINE. [Suspect]
     Active Substance: MIRTAZAPINE
     Indication: SLEEP DISORDER
     Dosage: 7.5 [MG/D], 0. - 38.4. GESTATIONAL WEEK
     Route: 064
     Dates: start: 20170902, end: 20180530
  8. JUNIK [Concomitant]
     Active Substance: BECLOMETHASONE DIPROPIONATE
     Indication: ASTHMA
     Dosage: 100 MICRO-GRAM, 0. - 38.4. GESTATIONAL WEEK
     Route: 064
     Dates: start: 20170902, end: 20180530

REACTIONS (6)
  - Cryptorchism [Unknown]
  - Foetal exposure during pregnancy [Unknown]
  - Neonatal hyponatraemia [Unknown]
  - Neonatal seizure [Recovered/Resolved]
  - Agitation neonatal [Recovered/Resolved]
  - Renal aplasia [Not Recovered/Not Resolved]

NARRATIVE: CASE EVENT DATE: 20180530
